FAERS Safety Report 22522740 (Version 1)
Quarter: 2023Q2

REPORT INFORMATION
  Report Type: Report from Study
  Country: BE (occurrence: BE)
  Receive Date: 20230605
  Receipt Date: 20230605
  Transmission Date: 20230722
  Serious: Yes (Other)
  Sender: FDA-Public Use
  Company Number: BE-ABBVIE-5275953

PATIENT
  Sex: Male

DRUGS (9)
  1. CARBIDOPA\LEVODOPA [Suspect]
     Active Substance: CARBIDOPA\LEVODOPA
     Indication: Parkinson^s disease
     Route: 050
     Dates: start: 20110509
  2. CARBIDOPA\LEVODOPA [Suspect]
     Active Substance: CARBIDOPA\LEVODOPA
     Dosage: MD: 3.0 ML, CD: 5.5 ML/H, ED: 3.0 ML DURING 24 HOURS
     Route: 050
     Dates: start: 20230105, end: 20230105
  3. CARBIDOPA\LEVODOPA [Suspect]
     Active Substance: CARBIDOPA\LEVODOPA
     Dosage: ED: 0.0 ML, CND: 3.5 ML/H DURING 24 HOURS
     Route: 050
     Dates: start: 20230105
  4. BENSERAZIDE\LEVODOPA [Concomitant]
     Active Substance: BENSERAZIDE\LEVODOPA
     Indication: Product used for unknown indication
     Dosage: FORM STRENGTH: 125, FREQUENCY: ONCE
  5. BENSERAZIDE\LEVODOPA [Concomitant]
     Active Substance: BENSERAZIDE\LEVODOPA
     Indication: Product used for unknown indication
     Dosage: FORM STRENGTH: 250, FREQUENCY : 5 TIMES
  6. AMANTAN [Concomitant]
     Indication: Product used for unknown indication
     Dosage: FORM STRENGTH: 100 MG, FREQUENCY: TWICE
  7. REQUIP [Concomitant]
     Active Substance: ROPINIROLE HYDROCHLORIDE
     Indication: Product used for unknown indication
     Dosage: FORM STRENGTH: 5 MG, FREQUENCY: 5 TIMES
  8. BENSERAZIDE\LEVODOPA [Concomitant]
     Active Substance: BENSERAZIDE\LEVODOPA
     Indication: Product used for unknown indication
     Dosage: FORM STRENGTH: 125, FREQUENCY: 5 TIMES
  9. AZILECT [Concomitant]
     Active Substance: RASAGILINE MESYLATE
     Indication: Product used for unknown indication

REACTIONS (7)
  - Infarction [Unknown]
  - Mobility decreased [Unknown]
  - Cerebral disorder [Unknown]
  - Aggression [Unknown]
  - Confusional state [Unknown]
  - Disorientation [Unknown]
  - Pulmonary embolism [Unknown]
